FAERS Safety Report 9868592 (Version 1)
Quarter: 2014Q1

REPORT INFORMATION
  Report Type: Spontaneous
  Country: US (occurrence: US)
  Receive Date: 20140204
  Receipt Date: 20140204
  Transmission Date: 20141002
  Serious: Yes (Other)
  Sender: FDA-Public Use
  Company Number: US-PFIZER INC-2014029004

PATIENT
  Age: 76 Year
  Sex: Female
  Weight: 69.84 kg

DRUGS (10)
  1. CELEBREX [Suspect]
     Indication: RHEUMATOID ARTHRITIS
     Dosage: 200 MG, 2X/DAY
     Route: 048
  2. CELEBREX [Suspect]
     Indication: OSTEOARTHRITIS
  3. LEVOTHYROXINE [Concomitant]
     Indication: HYPOTHYROIDISM
     Dosage: UNK
  4. PLAQUENIL [Concomitant]
     Dosage: UNK
     Dates: end: 20140129
  5. NEXIUM [Concomitant]
     Dosage: UNK
  6. VESICARE [Concomitant]
     Indication: MICTURITION DISORDER
     Dosage: UNK
  7. WARFARIN [Concomitant]
     Dosage: UNK
  8. SIMVASTATIN [Concomitant]
     Dosage: 10 MG, UNK
  9. RESTASIS [Concomitant]
     Indication: DRY EYE
     Dosage: UNK
  10. METHOTREXATE [Concomitant]
     Dosage: UNK, WEEKLY

REACTIONS (5)
  - Upper limb fracture [Unknown]
  - Fall [Unknown]
  - Swelling [Unknown]
  - Blood test abnormal [Unknown]
  - Epigastric discomfort [Unknown]
